FAERS Safety Report 24126252 (Version 1)
Quarter: 2024Q3

REPORT INFORMATION
  Report Type: Spontaneous
  Country: US (occurrence: None)
  Receive Date: 20240721
  Receipt Date: 20240721
  Transmission Date: 20241016
  Serious: Yes (Other)
  Sender: Public
  Company Number: None

PATIENT
  Age: 71 Year
  Sex: Male
  Weight: 96.75 kg

DRUGS (6)
  1. TRIAMTERENE-HYDROCHLOROTHIAZIDE [Suspect]
     Active Substance: TRIAMTERENE-HYDROCHLOROTHIAZIDE
     Indication: Fluid retention
     Dosage: OTHER QUANTITY : 30 TABLET(S);?
     Route: 048
     Dates: start: 20240715, end: 20240721
  2. TRIAMTERENE-HYDROCHLOROTHIAZIDE [Suspect]
     Active Substance: TRIAMTERENE-HYDROCHLOROTHIAZIDE
     Indication: Blood pressure measurement
  3. TRIAMTERENE [Concomitant]
     Active Substance: TRIAMTERENE
  4. CARVEDILOL [Concomitant]
  5. LISINOPRIL [Concomitant]
  6. CLONIDINE [Concomitant]

REACTIONS (4)
  - Dizziness [None]
  - Syncope [None]
  - Abdominal pain upper [None]
  - Diarrhoea [None]

NARRATIVE: CASE EVENT DATE: 20240720
